FAERS Safety Report 25287823 (Version 1)
Quarter: 2025Q2

REPORT INFORMATION
  Report Type: Spontaneous
  Country: US (occurrence: None)
  Receive Date: 20250508
  Receipt Date: 20250508
  Transmission Date: 20250717
  Serious: No
  Sender: FDA-CTU
  Company Number: None

PATIENT
  Sex: Female

DRUGS (1)
  1. SEMAGLUTIDE [Suspect]
     Active Substance: SEMAGLUTIDE
     Indication: Weight decreased
     Route: 058
     Dates: start: 20250409, end: 20250507

REACTIONS (5)
  - Nausea [None]
  - Influenza like illness [None]
  - Constipation [None]
  - Wrong technique in device usage process [None]
  - Incorrect dose administered [None]

NARRATIVE: CASE EVENT DATE: 20250507
